FAERS Safety Report 8849011 (Version 1)
Quarter: 2012Q4

REPORT INFORMATION
  Report Type: 
  Country: US (occurrence: US)
  Receive Date: 20121019
  Receipt Date: 20121019
  Transmission Date: 20130627
  Serious: Yes (Other)
  Sender: FDA-Public Use
  Company Number: US-ELI_LILLY_AND_COMPANY-US201210002858

PATIENT
  Age: 46 Year
  Sex: Female

DRUGS (11)
  1. CYMBALTA [Suspect]
     Indication: DEPRESSION
     Dosage: 60 mg, qd
     Dates: start: 200510
  2. CYMBALTA [Suspect]
     Dosage: 30 mg, qd
  3. CYMBALTA [Suspect]
     Dosage: 10 mg, qd
     Dates: end: 20120914
  4. KLONOPIN [Concomitant]
     Dosage: 1 mg, UNK
  5. TIZANIDINE [Concomitant]
     Dosage: 4 mg, UNK
  6. SOMA [Concomitant]
     Dosage: 350 mg, UNK
  7. OXYCODONE [Concomitant]
     Dosage: 15 mg, UNK
  8. GABAPENTIN [Concomitant]
     Dosage: 400 mg, UNK
  9. ALBUTEROL [Concomitant]
  10. IMITREX [Concomitant]
     Dosage: 100 mg, UNK
  11. LIDODERM [Concomitant]

REACTIONS (14)
  - Lower limb fracture [Unknown]
  - Folliculitis [Not Recovered/Not Resolved]
  - Lichen planus [Unknown]
  - Lichen striatus [Unknown]
  - Pigmentation disorder [Not Recovered/Not Resolved]
  - Neurodermatitis [Recovering/Resolving]
  - Scar [Unknown]
  - Crying [Unknown]
  - Abnormal behaviour [Unknown]
  - Hair growth abnormal [Unknown]
  - Visual impairment [Unknown]
  - Rash [Unknown]
  - Drug withdrawal syndrome [Unknown]
  - Wrong technique in drug usage process [Unknown]
